FAERS Safety Report 9500789 (Version 1)
Quarter: 2013Q1

REPORT INFORMATION
  Report Type: Spontaneous
  Country: US (occurrence: None)
  Receive Date: 20130110
  Receipt Date: 20130110
  Transmission Date: 20140127
  Serious: Yes (Other)
  Sender: FDA-Public Use
  Company Number: 1195727

PATIENT
  Age: 69 Year
  Sex: Female
  Weight: 52.27 kg

DRUGS (2)
  1. DEMEROL [Suspect]
     Indication: SEDATION
     Dosage: 25 MG MILLIGRAM(S), UNKNOWN, INTRAVENOUS (NOT OTHERWISE SPECIFIED)
     Route: 042
     Dates: start: 20120120, end: 20120120
  2. MIDAZOLAM [Suspect]
     Indication: SEDATION
     Dosage: 1 MG MILLIGRAM(S) (UNKNOWN) INTRAVENOUS (NOT OTHERWISE SPECIFIED)
     Route: 042
     Dates: start: 20120120, end: 20120120

REACTIONS (1)
  - Unresponsive to stimuli [None]
